FAERS Safety Report 8766748 (Version 2)
Quarter: 2012Q4

REPORT INFORMATION
  Report Type: Report from Study
  Country: JP (occurrence: JP)
  Receive Date: 20120904
  Receipt Date: 20120917
  Transmission Date: 20130627
  Serious: Yes (Hospitalization)
  Sender: FDA-Public Use
  Company Number: JP-JNJFOC-20120814851

PATIENT
  Age: 32 Year
  Sex: Male
  Weight: 72 kg

DRUGS (4)
  1. TRAMCET [Suspect]
     Indication: PROCEDURAL PAIN
     Dosage: 2 Dose 1 per day
     Route: 048
     Dates: start: 20120802, end: 20120802
  2. CEFMETAZON [Concomitant]
     Indication: PROPHYLAXIS
     Route: 042
     Dates: start: 20120802, end: 20120804
  3. VOLTAREN [Concomitant]
     Indication: PROCEDURAL PAIN
     Route: 054
     Dates: start: 20120802, end: 20120803
  4. FLOMOX [Concomitant]
     Indication: PROPHYLAXIS
     Dosage: once daily
     Route: 048
     Dates: start: 20120804, end: 20120805

REACTIONS (1)
  - Pyrexia [Recovering/Resolving]
